FAERS Safety Report 9844929 (Version 2)
Quarter: 2014Q2

REPORT INFORMATION
  Report Type: Spontaneous
  Country: GB (occurrence: None)
  Receive Date: 20140122
  Receipt Date: 20140428
  Transmission Date: 20141212
  Serious: Yes (Other)
  Sender: FDA-Public Use
  Company Number: ABR_01387_2014

PATIENT
  Age: 55 Year
  Sex: Female

DRUGS (2)
  1. ERYTHROMYCIN [Suspect]
     Indication: LOWER RESPIRATORY TRACT INFECTION
     Dosage: (DF)
     Route: 048
     Dates: start: 20120719
  2. PROPYLTHIOURACIL (PROPYLTHIOURACIL) [Suspect]
     Indication: PRODUCT USED FOR UNKNOWN INDICATION
     Dosage: (DF)

REACTIONS (8)
  - Headache [None]
  - Hyperthyroidism [None]
  - Paraesthesia [None]
  - Chest discomfort [None]
  - Paraesthesia oral [None]
  - Lethargy [None]
  - Neutropenia [None]
  - Pollakiuria [None]
